FAERS Safety Report 6671766-5 (Version None)
Quarter: 2010Q2

REPORT INFORMATION
  Report Type: 
  Country: None (occurrence: None)
  Receive Date: 20100407
  Receipt Date: 20100326
  Transmission Date: 20101027
  Serious: Yes (Hospitalization)
  Sender: FDA-Public Use
  Company Number: DE-PFIZER INC-2008060416

PATIENT
  Age: 58 Year
  Sex: Male
  Weight: 119 kg

DRUGS (8)
  1. SUNITINIB MALATE [Suspect]
     Indication: METASTATIC RENAL CELL CARCINOMA
     Dosage: 50 MG, 1X/DAY
     Route: 048
     Dates: start: 20080605, end: 20080703
  2. LEVOTHYROXINE SODIUM [Concomitant]
  3. ESIDRIX [Concomitant]
  4. SPIRONOLACTONE [Concomitant]
  5. LERCANIDIPINE HYDROCHLORIDE [Concomitant]
     Dates: end: 20080717
  6. ATACAND [Concomitant]
  7. POTASSIUM IODIDE [Concomitant]
  8. NEXIUM [Concomitant]

REACTIONS (2)
  - ASCITES [None]
  - PLEURAL EFFUSION [None]
